FAERS Safety Report 11386104 (Version 3)
Quarter: 2015Q3

REPORT INFORMATION
  Report Type: Spontaneous
  Country: GB (occurrence: GB)
  Receive Date: 20150817
  Receipt Date: 20150923
  Transmission Date: 20151125
  Serious: Yes (Life-Threatening, Hospitalization)
  Sender: FDA-Public Use
  Company Number: GB-TEVA-585174ACC

PATIENT
  Age: 72 Year
  Sex: Female
  Weight: 63 kg

DRUGS (5)
  1. PACLITAXEL. [Suspect]
     Active Substance: PACLITAXEL
     Indication: CHEMOTHERAPY
     Route: 042
     Dates: start: 20050805, end: 20051031
  2. TEVA UK CARBOPLATIN [Suspect]
     Active Substance: CARBOPLATIN
     Indication: CHEMOTHERAPY
     Route: 042
     Dates: start: 20050805, end: 20050826
  3. PACLITAXEL. [Suspect]
     Active Substance: PACLITAXEL
     Indication: PALLIATIVE CARE
     Route: 042
     Dates: start: 20050805, end: 20051031
  4. TEVA UK CARBOPLATIN [Suspect]
     Active Substance: CARBOPLATIN
     Indication: CHEMOTHERAPY
     Route: 042
     Dates: start: 20050805, end: 20050826
  5. PACLITAXEL. [Suspect]
     Active Substance: PACLITAXEL
     Indication: CHEMOTHERAPY

REACTIONS (4)
  - Bradycardia [Unknown]
  - Coma [Recovered/Resolved]
  - Erythema [Recovered/Resolved]
  - Cardiac arrest [Recovered/Resolved]

NARRATIVE: CASE EVENT DATE: 20050826
